FAERS Safety Report 22929449 (Version 3)
Quarter: 2023Q4

REPORT INFORMATION
  Report Type: Spontaneous
  Country: FR (occurrence: FR)
  Receive Date: 20230911
  Receipt Date: 20231018
  Transmission Date: 20240109
  Serious: Yes (Hospitalization, Other)
  Sender: FDA-Public Use
  Company Number: None

PATIENT
  Age: 61 Year
  Sex: Female
  Weight: 65 kg

DRUGS (19)
  1. QUETIAPINE FUMARATE [Suspect]
     Active Substance: QUETIAPINE FUMARATE
     Indication: Mental disorder
     Dosage: 100 MILLIGRAM,QD(100 MG PER DAY LONG-TERM)
     Route: 048
  2. CLOMIPRAMINE [Suspect]
     Active Substance: CLOMIPRAMINE
     Indication: Mental disorder
     Dosage: 150MILLIGRAM,QD (IN EVENING,LONG TERM TREATMENT)
     Route: 048
  3. TROSPIUM [Suspect]
     Active Substance: TROSPIUM
     Indication: Mental disorder
     Dosage: UNK
     Route: 065
  4. CYAMEMAZINE [Suspect]
     Active Substance: CYAMEMAZINE
     Indication: Mental disorder
     Dosage: 100MG,QD(100 MG AT BEDTIME, LONG-TERM TREATMENT
     Route: 048
  5. PANTOPRAZOLE [Suspect]
     Active Substance: PANTOPRAZOLE
     Indication: Gastric ulcer
     Dosage: 40 MILLIGRAM,QD(40 MG IN THE EVENING)
     Route: 048
     Dates: start: 2023
  6. LACTULOSE [Suspect]
     Active Substance: LACTULOSE
     Indication: Product used for unknown indication
     Dosage: UNK
     Route: 065
  7. PREDNISONE [Suspect]
     Active Substance: PREDNISONE
     Indication: Product used for unknown indication
     Dosage: 1 DOSAGE FORM,QD (1 TAB IN THE MORNING)
     Route: 048
     Dates: start: 20230728
  8. SKENAN [Suspect]
     Active Substance: MORPHINE SULFATE
     Indication: Pain
     Dosage: 2 DOSAGE FORM,QD(1 CAPSULE MORNING AND EVENING)
     Route: 048
     Dates: start: 2023
  9. SKENAN [Suspect]
     Active Substance: MORPHINE SULFATE
     Dosage: 2 DOSAGE FORM, BID
     Route: 048
     Dates: start: 2023
  10. SKENAN [Suspect]
     Active Substance: MORPHINE SULFATE
     Dosage: 3DF,PRN (2DF,PRN MORNING,NOON AND NIGHT IF PAIN)
     Route: 048
     Dates: start: 2023
  11. MORPHINE SULFATE [Suspect]
     Active Substance: MORPHINE SULFATE
     Indication: Pain
     Dosage: 3DF(1 CAPSULE MORNING, NOON AND EVENING IF PAIN)
     Route: 048
     Dates: start: 2023
  12. PILOCARPINE [Suspect]
     Active Substance: PILOCARPINE
     Indication: Product used for unknown indication
     Dosage: UNK
     Route: 065
  13. ANETHOLTRITHION [Suspect]
     Active Substance: ANETHOLTRITHION
     Indication: Mental disorder
     Dosage: UNK
     Route: 065
  14. LEVOTHYROXINE SODIUM [Suspect]
     Active Substance: LEVOTHYROXINE SODIUM
     Indication: Product used for unknown indication
     Dosage: UNK
     Route: 065
  15. FESOTERODINE FUMARATE [Suspect]
     Active Substance: FESOTERODINE FUMARATE
     Indication: Mental disorder
     Dosage: UNK
     Route: 065
  16. SPAGULAX [Suspect]
     Active Substance: HERBALS\PLANTAGO OVATA SEED
     Indication: Mental disorder
     Dosage: UNK
     Route: 065
  17. POTASSIUM BITARTRATE\SODIUM BICARBONATE [Suspect]
     Active Substance: POTASSIUM BITARTRATE\SODIUM BICARBONATE
     Indication: Mental disorder
     Dosage: UNK
     Route: 065
  18. CALCIUM LEVULINATE ANHYDROUS\CHOLECALCIFEROL\CYANOCOBALAMIN [Suspect]
     Active Substance: CALCIUM LEVULINATE ANHYDROUS\CHOLECALCIFEROL\CYANOCOBALAMIN
     Indication: Mental disorder
     Dosage: UNK
     Route: 065
  19. ENBREL [Suspect]
     Active Substance: ETANERCEPT
     Indication: Mental disorder
     Dosage: UNK
     Route: 065

REACTIONS (2)
  - Psychiatric decompensation [Unknown]
  - Oedema peripheral [Not Recovered/Not Resolved]

NARRATIVE: CASE EVENT DATE: 20230701
